FAERS Safety Report 5712748-7 (Version None)
Quarter: 2008Q2

REPORT INFORMATION
  Report Type: 
  Country: None (occurrence: None)
  Receive Date: 20080422
  Receipt Date: 20080411
  Transmission Date: 20081010
  Serious: Yes (Hospitalization)
  Sender: FDA-Public Use
  Company Number: US-JNJFOC-20080203821

PATIENT
  Sex: Male
  Weight: 111.13 kg

DRUGS (19)
  1. DURAGESIC-100 [Suspect]
     Route: 062
  2. DURAGESIC-100 [Suspect]
     Indication: PAIN
     Route: 062
  3. FENTANYL TRANSDERMAL SYSTEM [Suspect]
     Indication: PAIN
     Route: 062
  4. FLONASE [Concomitant]
     Indication: MULTIPLE ALLERGIES
     Route: 055
  5. LOPID [Concomitant]
     Indication: BLOOD CHOLESTEROL
     Route: 048
  6. METFORMIN HCL [Concomitant]
     Indication: DIABETES MELLITUS
     Route: 048
  7. GLYBURIDE [Concomitant]
     Indication: DIABETES MELLITUS
     Route: 048
  8. LISINOPRIL [Concomitant]
     Indication: BLOOD PRESSURE
     Route: 048
  9. FUROSEMIDE [Concomitant]
     Indication: HYPERTENSION
     Route: 048
  10. PREVACID [Concomitant]
     Indication: GASTROOESOPHAGEAL REFLUX DISEASE
     Route: 048
  11. LESCOL XL [Concomitant]
     Indication: BLOOD CHOLESTEROL
     Route: 048
  12. XANAX [Concomitant]
     Indication: ANXIETY
     Route: 048
  13. TEGRETOL [Concomitant]
     Indication: BIPOLAR DISORDER
     Route: 048
  14. PERCOCET [Concomitant]
     Indication: BREAKTHROUGH PAIN
     Dosage: AS NEEDED 5/325  MG
     Route: 048
  15. CELEXA [Concomitant]
     Indication: BIPOLAR DISORDER
     Route: 048
  16. ALLEGRA D 24 HOUR [Concomitant]
     Indication: MULTIPLE ALLERGIES
     Dosage: LISINOPRIL AND HYDROCODONE 20MG/25MG
     Route: 048
  17. LASIX [Concomitant]
     Indication: BLOOD PRESSURE
     Route: 048
  18. CARBAMAZEPINE [Concomitant]
     Indication: DRUG THERAPY
     Route: 048
  19. CITALOPRAM HYDROBROMIDE [Concomitant]
     Indication: DRUG THERAPY
     Route: 048

REACTIONS (3)
  - BACK PAIN [None]
  - DIARRHOEA [None]
  - INSOMNIA [None]
